FAERS Safety Report 8385276-0 (Version None)
Quarter: 2012Q2

REPORT INFORMATION
  Report Type: 
  Country: None (occurrence: None)
  Receive Date: 20120525
  Receipt Date: 20120515
  Transmission Date: 20120825
  Serious: No
  Sender: FDA-Public Use
  Company Number: US-BIOGENIDEC-2012BI017194

PATIENT
  Age: 48 Year
  Sex: Female

DRUGS (1)
  1. TYSABRI [Suspect]
     Indication: MULTIPLE SCLEROSIS
     Route: 042
     Dates: start: 20120111

REACTIONS (8)
  - SOMNOLENCE [None]
  - HEMIPARESIS [None]
  - MYALGIA [None]
  - PRURITUS [None]
  - BACK PAIN [None]
  - FATIGUE [None]
  - NAUSEA [None]
  - HEADACHE [None]
